FAERS Safety Report 5660798-1 (Version None)
Quarter: 2008Q1

REPORT INFORMATION
  Report Type: 
  Country: None (occurrence: None)
  Receive Date: 20080306
  Receipt Date: 20080225
  Transmission Date: 20080703
  Serious: Yes (Hospitalization)
  Sender: FDA-Public Use
  Company Number: 2007-03182

PATIENT
  Age: 62 Year
  Sex: Male
  Weight: 64 kg

DRUGS (16)
  1. VELCADE [Suspect]
     Indication: MULTIPLE MYELOMA
     Dosage: 2.12 MG, INTRAVENOUS; 2.10 MG, INTRAVENOUS
     Route: 042
     Dates: start: 20070712, end: 20070723
  2. VELCADE [Suspect]
     Indication: MULTIPLE MYELOMA
     Dosage: 2.12 MG, INTRAVENOUS; 2.10 MG, INTRAVENOUS
     Route: 042
     Dates: start: 20070907, end: 20080117
  3. OXYCODONE HCL [Suspect]
     Indication: DRUG USE FOR UNKNOWN INDICATION
     Dosage: 40.00 MG, ORAL; 0.50 G, INTRAVENOUS
     Dates: start: 20070704, end: 20070801
  4. OXYCODONE HCL [Suspect]
     Indication: DRUG USE FOR UNKNOWN INDICATION
     Dosage: 40.00 MG, ORAL; 0.50 G, INTRAVENOUS
     Dates: start: 20070704, end: 20070801
  5. NOVAMIN (PROCHLORPERAZINE) [Concomitant]
  6. MAGNESIUM OXIDE (MAGNESIUM OXIDE) [Concomitant]
  7. ALLOPURINOL [Concomitant]
  8. RITALIN [Concomitant]
  9. METHYCOBAL (MECOBALAMIN) [Concomitant]
  10. CLONAZEPAM [Concomitant]
  11. GLYCYRRHIZA EXTRACT (GLYCYRRHIZA EXTRACT) [Concomitant]
  12. PROTECADIN /JPN/ (LAFUTIDINE) [Concomitant]
  13. ONE-ALPHA (ALFACALCIDOL) [Concomitant]
  14. ALENDRONATE SODIUM [Concomitant]
  15. LOXONIN (LOXOPROFEN SODIUM) [Concomitant]
  16. TENORMIN [Concomitant]

REACTIONS (5)
  - BLOOD PRESSURE INCREASED [None]
  - DELIRIUM [None]
  - LIVER DISORDER [None]
  - PLATELET COUNT DECREASED [None]
  - PYREXIA [None]
